FAERS Safety Report 7687212 (Version 2)
Quarter: 2013Q3

REPORT INFORMATION
  Report Type: Spontaneous
  Country: US (occurrence: US)
  Receive Date: 20101130
  Receipt Date: 20130820
  Transmission Date: 20140515
  Serious: Yes (Other)
  Sender: FDA-Public Use
  Company Number: US-ROCHE-722754

PATIENT
  Age: 48 Year
  Sex: Male
  Weight: 91.2 kg

DRUGS (9)
  1. ACCUTANE [Suspect]
     Indication: ACNE
     Route: 065
     Dates: start: 19940218, end: 19941129
  2. ACCUTANE [Suspect]
     Route: 065
  3. HYDROCHLOROTHIAZIDE [Concomitant]
     Route: 065
  4. WELLBUTRIN [Concomitant]
  5. TRICOR [Concomitant]
  6. ALLOPURINOL [Concomitant]
     Route: 065
  7. PREVACID [Concomitant]
  8. PENTASA [Concomitant]
  9. PRILOSEC [Concomitant]

REACTIONS (16)
  - Gastrointestinal injury [Unknown]
  - Crohn^s disease [Not Recovered/Not Resolved]
  - Pharyngo-oesophageal diverticulum [Not Recovered/Not Resolved]
  - Inflammatory bowel disease [Unknown]
  - Intestinal haemorrhage [Unknown]
  - Depression [Unknown]
  - Haemorrhoids [Unknown]
  - Arthralgia [Unknown]
  - Oropharyngeal pain [Unknown]
  - Laryngitis [Unknown]
  - Erectile dysfunction [Unknown]
  - Tinnitus [Unknown]
  - Diverticulum intestinal [Unknown]
  - Blood pressure increased [Unknown]
  - Blood potassium decreased [Unknown]
  - Anaemia [Unknown]
